FAERS Safety Report 11123822 (Version 2)
Quarter: 2015Q2

REPORT INFORMATION
  Report Type: Spontaneous
  Country: US (occurrence: US)
  Receive Date: 20150520
  Receipt Date: 20150521
  Transmission Date: 20150821
  Serious: Yes (Life-Threatening, Hospitalization, Other)
  Sender: FDA-Public Use
  Company Number: US-ROCHE-1579417

PATIENT
  Sex: Female

DRUGS (3)
  1. XOLAIR [Suspect]
     Active Substance: OMALIZUMAB
     Indication: ASTHMA
     Route: 065
  2. EPIPEN [Concomitant]
     Active Substance: EPINEPHRINE
  3. SINGULAIR [Concomitant]
     Active Substance: MONTELUKAST SODIUM

REACTIONS (12)
  - Hypersensitivity [Unknown]
  - Rash [Unknown]
  - Feeling hot [Unknown]
  - Lip swelling [Unknown]
  - Throat tightness [Unknown]
  - Seasonal allergy [Not Recovered/Not Resolved]
  - Allergy to chemicals [Unknown]
  - Blood glucose increased [Unknown]
  - Dysphagia [Unknown]
  - Skin reaction [Unknown]
  - Dyspnoea [Unknown]
  - Cough [Unknown]

NARRATIVE: CASE EVENT DATE: 2015
